FAERS Safety Report 17157632 (Version 2)
Quarter: 2019Q4

REPORT INFORMATION
  Report Type: Spontaneous
  Country: FR (occurrence: FR)
  Receive Date: 20191216
  Receipt Date: 20191220
  Transmission Date: 20200122
  Serious: Yes (Other)
  Sender: FDA-Public Use
  Company Number: FR-SA-2019SA341288

PATIENT
  Age: 58 Year
  Sex: Female

DRUGS (1)
  1. CEREZYME [Suspect]
     Active Substance: IMIGLUCERASE
     Indication: GAUCHER^S DISEASE
     Dosage: UNK UNK, UNK
     Route: 065
     Dates: start: 20131119, end: 20191008

REACTIONS (5)
  - Prolapse [Unknown]
  - Depression [Unknown]
  - Angiopathy [Unknown]
  - Urinary retention [Unknown]
  - Fistula [Unknown]

NARRATIVE: CASE EVENT DATE: 201909
